FAERS Safety Report 5360591-3 (Version None)
Quarter: 2007Q2

REPORT INFORMATION
  Report Type: 
  Country: None (occurrence: None)
  Receive Date: 20070618
  Receipt Date: 20070607
  Transmission Date: 20071010
  Serious: Yes (Death)
  Sender: FDA-Public Use
  Company Number: ZA-ELI_LILLY_AND_COMPANY-ZA200706002356

PATIENT
  Age: 24 Year
  Sex: Female

DRUGS (9)
  1. CAPASTAT SULFATE [Suspect]
     Indication: DRUG RESISTANCE
     Dosage: 1 G, DAILY (1/D)
     Route: 030
     Dates: start: 20070104, end: 20070525
  2. ETHIONAMIDE [Concomitant]
     Indication: TUBERCULOSIS
     Dosage: UNK, UNKNOWN
     Route: 065
  3. ETHAMBUTOL HYDROCHLORIDE [Concomitant]
     Indication: TUBERCULOSIS
     Dosage: UNK, UNKNOWN
     Route: 065
  4. TERIZIDONE [Concomitant]
     Indication: TUBERCULOSIS
     Dosage: UNK, UNKNOWN
     Route: 065
  5. AMOXICILLIN [Concomitant]
     Dosage: UNK, UNKNOWN
     Route: 065
  6. CLARITHROMYCIN [Concomitant]
     Dosage: UNK, UNKNOWN
     Route: 065
  7. PYRAZINAMIDE [Concomitant]
     Indication: TUBERCULOSIS
     Dosage: UNK, UNKNOWN
     Route: 065
  8. PYRIDOXINE HCL [Concomitant]
     Indication: VITAMIN B6 DEFICIENCY
     Dosage: UNK, UNKNOWN
     Route: 065
  9. PARA AMINOSALICYLIC ACID [Concomitant]
     Indication: TUBERCULOSIS
     Dosage: UNK, UNKNOWN
     Route: 065
     Dates: end: 20070120

REACTIONS (2)
  - DEATH [None]
  - HYPOKALAEMIA [None]
